FAERS Safety Report 11774441 (Version 8)
Quarter: 2020Q4

REPORT INFORMATION
  Report Type: Spontaneous
  Country: US (occurrence: US)
  Receive Date: 20151117
  Receipt Date: 20201008
  Transmission Date: 20210113
  Serious: Yes (Hospitalization)
  Sender: FDA-Public Use
  Company Number: US-PFIZER INC-2015381945

PATIENT
  Age: 58 Year
  Sex: Female
  Weight: 130 kg

DRUGS (20)
  1. LYRICA [Suspect]
     Active Substance: PREGABALIN
     Indication: NEURALGIA
     Dosage: 100 MG, 3X/DAY
     Route: 048
     Dates: start: 20160714
  2. LYRICA [Suspect]
     Active Substance: PREGABALIN
     Dosage: 100MG, TWICE A DAY (TWO CAPSULES IN THE MORNING AND ONE AT NIGHT BY MOUTH)
     Route: 048
  3. ZESTRIL [Concomitant]
     Active Substance: LISINOPRIL
     Dosage: 20 MG, 1X/DAY
     Route: 048
  4. TOPAMAX [Concomitant]
     Active Substance: TOPIRAMATE
     Dosage: 100 MG, 2X/DAY
     Route: 048
  5. ULORIC [Concomitant]
     Active Substance: FEBUXOSTAT
     Dosage: 40 MG, 1X/DAY
     Route: 048
  6. ALLOPURINOL. [Concomitant]
     Active Substance: ALLOPURINOL
     Dosage: 100 MG, DAILY
     Route: 048
  7. PHENERGAN [Concomitant]
     Active Substance: PROMETHAZINE HYDROCHLORIDE
     Indication: NAUSEA
     Dosage: 25 MG, AS NEEDED (TAKE 1 TABLET (25 MG TOTAL) EVERY 6 HOURS)
     Route: 048
  8. CARAFATE [Concomitant]
     Active Substance: SUCRALFATE
     Dosage: 1 G, AS NEEDED(TAKE 1 TABLET (1 G TOTAL) BY MOUTH 4 TIMES DAILY)
     Route: 048
  9. LYRICA [Suspect]
     Active Substance: PREGABALIN
     Indication: NEUROPATHY PERIPHERAL
     Dosage: UNK, 3X/DAY (A 100MG TABLET AND 50MG TABLET, TAKES 3 LYRICA A DAY)
  10. ERGOCALCIFEROL. [Concomitant]
     Active Substance: ERGOCALCIFEROL
     Dosage: 50000 IU, WEEKLY(TAKE 1 CAPSULE (50,000 UNITS TOTAL) BY MOUTH EVERY 7 DAYS.)
     Route: 048
  11. NORCO [Concomitant]
     Active Substance: ACETAMINOPHEN\HYDROCODONE BITARTRATE
     Dosage: UNK UNK, AS NEEDED(HYDROCODONE BITARTRATE: 7.5 MG/ PARACETAMOL: 325MG, 1 TABLET EVERY 6HRS)
     Route: 048
  12. ECOTRIN [Concomitant]
     Active Substance: ASPIRIN
     Dosage: 81 MG, DAILY
     Route: 048
  13. ONGLYZA [Concomitant]
     Active Substance: SAXAGLIPTIN HYDROCHLORIDE
     Dosage: 5 MG, 1X/DAY
     Route: 048
  14. PROCTOSOL HC [Concomitant]
     Dosage: UNK UNK, AS NEEDED (2.5%, PLACE RECTALLY 2 TIMES DAILY)
     Route: 054
  15. PROLIA [Concomitant]
     Active Substance: DENOSUMAB
     Dosage: 1 ML, UNK (INJECT 1 ML (60 MG TOTAL) INTO THE SKIN EVERY 6 (SIX) MONTHS)
     Route: 023
  16. PRINIVIL [Concomitant]
     Active Substance: LISINOPRIL
     Dosage: 20 MG, 1X/DAY
     Route: 048
  17. ZOFRON-ODT [Concomitant]
     Indication: NAUSEA
     Dosage: 8 MG, AS NEEDED(TAKE 2 TABLETS (8 MG TOTAL) BY MOTH EVERY 8 HOURS AS NEEDED )
     Route: 048
  18. REQUIP [Concomitant]
     Active Substance: ROPINIROLE HYDROCHLORIDE
     Dosage: 1 MG, 1X/DAY (EVERY EVENING)
     Route: 048
  19. EFFEXOR XR [Concomitant]
     Active Substance: VENLAFAXINE HYDROCHLORIDE
     Dosage: 150 MG, 1X/DAY
     Route: 048
  20. LIPITOR [Concomitant]
     Active Substance: ATORVASTATIN CALCIUM
     Dosage: 10 MG, 1X/DAY
     Route: 048

REACTIONS (9)
  - Feeling abnormal [Unknown]
  - Dehydration [Unknown]
  - Intentional product misuse [Unknown]
  - Restlessness [Unknown]
  - Eye disorder [Unknown]
  - Renal disorder [Unknown]
  - Feeding disorder [Unknown]
  - Withdrawal syndrome [Unknown]
  - Illness [Unknown]
